FAERS Safety Report 11890006 (Version 2)
Quarter: 2016Q1

REPORT INFORMATION
  Report Type: Spontaneous
  Country: US (occurrence: US)
  Receive Date: 20160105
  Receipt Date: 20160118
  Transmission Date: 20160526
  Serious: No
  Sender: FDA-Public Use
  Company Number: US-PFIZER INC-2015452244

PATIENT
  Age: 50 Year
  Sex: Female
  Weight: 59 kg

DRUGS (3)
  1. LYRICA [Suspect]
     Active Substance: PREGABALIN
     Indication: NEURALGIA
     Dosage: 300 MG, 2X/DAY
     Dates: start: 2006
  2. VITAMINS [Concomitant]
     Active Substance: VITAMINS
  3. LYRICA [Suspect]
     Active Substance: PREGABALIN
     Indication: SCAR

REACTIONS (3)
  - Migraine [Unknown]
  - Headache [Unknown]
  - Product use issue [Unknown]
